FAERS Safety Report 9057903 (Version 1)
Quarter: 2013Q1

REPORT INFORMATION
  Report Type: Spontaneous
  Country: JP (occurrence: JP)
  Receive Date: 20130210
  Receipt Date: 20130210
  Transmission Date: 20140127
  Serious: Yes (Hospitalization, Other)
  Sender: FDA-Public Use
  Company Number: JP-UCBSA-077758

PATIENT
  Age: 0 None
  Sex: Male
  Weight: 2.5 kg

DRUGS (5)
  1. E KEPPRA [Suspect]
     Indication: JUVENILE MYOCLONIC EPILEPSY
     Route: 064
     Dates: start: 20120613, end: 20120618
  2. E KEPPRA [Suspect]
     Indication: JUVENILE MYOCLONIC EPILEPSY
     Route: 064
     Dates: start: 20120619, end: 20121225
  3. DEPAKENE-R [Concomitant]
     Indication: JUVENILE MYOCLONIC EPILEPSY
     Dosage: DAILY DOSE: 300 MG
     Route: 064
     Dates: start: 2012, end: 2012
  4. LAMICTAL [Concomitant]
     Indication: JUVENILE MYOCLONIC EPILEPSY
     Dosage: DAILY DOSE: 150 MG
     Route: 064
     Dates: start: 2012, end: 2012
  5. RIVOTRIL [Concomitant]
     Indication: JUVENILE MYOCLONIC EPILEPSY
     Dosage: DAILY DOSE: 1.5 MG
     Route: 064
     Dates: start: 2012, end: 2012

REACTIONS (4)
  - Pneumothorax [Recovered/Resolved]
  - Pneumomediastinum [Recovered/Resolved]
  - Hypoglycaemia [Recovered/Resolved]
  - Foetal exposure during pregnancy [Recovered/Resolved]
